FAERS Safety Report 11926646 (Version 1)
Quarter: 2016Q1

REPORT INFORMATION
  Report Type: Spontaneous
  Country: US (occurrence: None)
  Receive Date: 20160115
  Receipt Date: 20160115
  Transmission Date: 20160526
  Serious: Yes (Hospitalization)
  Sender: FDA-Public Use
  Company Number: None

PATIENT
  Age: 33 Year
  Sex: Male
  Weight: 74.6 kg

DRUGS (5)
  1. FENTANYL. [Concomitant]
     Active Substance: FENTANYL
  2. MIDAZOLAM [Concomitant]
     Active Substance: MIDAZOLAM\MIDAZOLAM HYDROCHLORIDE
  3. DAPSONE 100 MG TABLETS UNKNOWN [Suspect]
     Active Substance: DAPSONE
     Indication: ANAESTHESIA
     Dosage: 25 MG ONCE IV?DATE OF USE: 14-DEC 2015 AT 1434
     Route: 042
     Dates: start: 20151214
  4. PROPOFOL. [Concomitant]
     Active Substance: PROPOFOL
  5. LIDOCAINE 1% INJECTION NOT CLEAR WHICH MANUFACTURER USED [Suspect]
     Active Substance: LIDOCAINE
     Indication: DERMATITIS HERPETIFORMIS
     Dosage: DATES OF USE: 13-DEC-2015 EVENING
     Route: 048
     Dates: start: 20151213

REACTIONS (2)
  - Oxygen saturation decreased [None]
  - Methaemoglobinaemia [None]

NARRATIVE: CASE EVENT DATE: 20151214
